FAERS Safety Report 14684010 (Version 1)
Quarter: 2018Q1

REPORT INFORMATION
  Report Type: Spontaneous
  Country: CH (occurrence: CH)
  Receive Date: 20180327
  Receipt Date: 20180327
  Transmission Date: 20180509
  Serious: Yes (Other)
  Sender: FDA-Public Use
  Company Number: CH-BAYER-2018-053153

PATIENT
  Age: 52 Year
  Sex: Male

DRUGS (3)
  1. STIVARGA [Suspect]
     Active Substance: REGORAFENIB
     Indication: HEPATOCELLULAR CARCINOMA
     Dosage: 40 MG, BID
     Route: 048
     Dates: start: 201610, end: 201611
  2. STIVARGA [Suspect]
     Active Substance: REGORAFENIB
     Indication: HEPATOCELLULAR CARCINOMA
     Dosage: 40 MG, TID
     Route: 048
     Dates: start: 201611, end: 201801
  3. LENVATINIB [Concomitant]
     Active Substance: LENVATINIB
     Indication: PALLIATIVE CARE
     Dosage: 12 MG/DAY

REACTIONS (5)
  - Fatigue [None]
  - Metastases to lymph nodes [None]
  - Dry skin [None]
  - Skin exfoliation [None]
  - Diarrhoea [None]

NARRATIVE: CASE EVENT DATE: 201611
